FAERS Safety Report 4801306-4 (Version None)
Quarter: 2005Q4

REPORT INFORMATION
  Report Type: 
  Country: None (occurrence: None)
  Receive Date: 20051017
  Receipt Date: 20051010
  Transmission Date: 20060501
  Serious: Yes (Hospitalization)
  Sender: FDA-Public Use
  Company Number: US-MERCK-0510USA05903

PATIENT
  Sex: Female

DRUGS (3)
  1. TRICOR [Concomitant]
     Route: 065
  2. VYTORIN [Suspect]
     Route: 048
  3. VYTORIN [Suspect]
     Route: 048

REACTIONS (1)
  - MUSCLE DISORDER [None]
